FAERS Safety Report 9580718 (Version 1)
Quarter: 2013Q3

REPORT INFORMATION
  Report Type: Spontaneous
  Country: US (occurrence: None)
  Receive Date: 20130916
  Receipt Date: 20130916
  Transmission Date: 20140515
  Serious: Yes (Hospitalization)
  Sender: FDA-Public Use
  Company Number: JPI-P-027169

PATIENT
  Sex: Female

DRUGS (1)
  1. XYREM [Suspect]
     Indication: SUICIDE ATTEMPT
     Dosage: (UNKNOWN, INGESTED)

REACTIONS (1)
  - Suicide attempt [None]
